FAERS Safety Report 8961380 (Version 1)
Quarter: 2012Q4

REPORT INFORMATION
  Report Type: 
  Country: US (occurrence: US)
  Receive Date: 20121213
  Receipt Date: 20121213
  Transmission Date: 20130627
  Serious: No
  Sender: FDA-Public Use
  Company Number: US-ALLERGAN-1208933US

PATIENT
  Age: 65 Year
  Sex: Male

DRUGS (2)
  1. ACZONE [Suspect]
     Indication: CYSTIC ACNE
     Dosage: day and night
     Route: 061
     Dates: start: 20120611, end: 20120626
  2. ZETIA [Concomitant]
     Indication: HIGH CHOLESTEROL

REACTIONS (3)
  - Abdominal distension [Unknown]
  - Abdominal pain [Unknown]
  - Headache [Unknown]
